FAERS Safety Report 12213396 (Version 2)
Quarter: 2016Q2

REPORT INFORMATION
  Report Type: Spontaneous
  Country: US (occurrence: US)
  Receive Date: 20160328
  Receipt Date: 20160426
  Transmission Date: 20160815
  Serious: Yes (Death, Other)
  Sender: FDA-Public Use
  Company Number: US-BAYER-2016-053722

PATIENT
  Age: 58 Year
  Sex: Male

DRUGS (1)
  1. XOFIGO [Suspect]
     Active Substance: RADIUM RA-223 DICHLORIDE
     Indication: SMALL CELL LUNG CANCER
     Dosage: 1 DOSE RECEIVED
     Dates: start: 20160122

REACTIONS (5)
  - Spinal cord compression [None]
  - Paralysis [None]
  - Lung neoplasm malignant [Fatal]
  - Off label use [None]
  - Small cell lung cancer extensive stage [None]

NARRATIVE: CASE EVENT DATE: 20160219
